FAERS Safety Report 5322907-3 (Version None)
Quarter: 2007Q2

REPORT INFORMATION
  Report Type: 
  Country: None (occurrence: None)
  Receive Date: 20070511
  Receipt Date: 20070427
  Transmission Date: 20071010
  Serious: Yes (Other)
  Sender: FDA-Public Use
  Company Number: JP-PFIZER INC-2007036839

PATIENT

DRUGS (3)
  1. ZITHROMAC [Suspect]
     Route: 048
  2. ETHAMBUTOL HYDROCHLORIDE [Concomitant]
  3. RIFAMPICIN [Concomitant]

REACTIONS (3)
  - AGITATION [None]
  - DEPRESSED MOOD [None]
  - HYPOAESTHESIA [None]
